FAERS Safety Report 15368998 (Version 2)
Quarter: 2018Q3

REPORT INFORMATION
  Report Type: Report from Study
  Country: None (occurrence: US)
  Receive Date: 20180911
  Receipt Date: 20180918
  Transmission Date: 20181010
  Serious: Yes (Death, Hospitalization)
  Sender: FDA-Public Use
  Company Number: US-ABBVIE-18S-163-2480285-00

PATIENT
  Age: 89 Year
  Sex: Female
  Weight: 49.94 kg

DRUGS (4)
  1. ASPIRIN. [Concomitant]
     Active Substance: ASPIRIN
     Indication: PROPHYLAXIS
  2. MAGNESIUM [Concomitant]
     Active Substance: MAGNESIUM
     Indication: PRODUCT USED FOR UNKNOWN INDICATION
  3. SYNTHROID [Suspect]
     Active Substance: LEVOTHYROXINE SODIUM
     Indication: HYPOTHYROIDISM
     Route: 048
  4. AMLODIPINE [Concomitant]
     Active Substance: AMLODIPINE BESYLATE
     Indication: HYPERTENSION

REACTIONS (7)
  - Lung disorder [Fatal]
  - Seizure [Fatal]
  - Intestinal obstruction [Unknown]
  - Carotid artery occlusion [Unknown]
  - Brain cancer metastatic [Fatal]
  - Cerebrovascular accident [Unknown]
  - Lung neoplasm [Fatal]

NARRATIVE: CASE EVENT DATE: 201601
